FAERS Safety Report 25795269 (Version 1)
Quarter: 2025Q3

REPORT INFORMATION
  Report Type: Spontaneous
  Country: US (occurrence: US)
  Receive Date: 20250912
  Receipt Date: 20250912
  Transmission Date: 20251021
  Serious: Yes (Hospitalization)
  Sender: ROCHE
  Company Number: US-ROCHE-10000379011

PATIENT
  Age: 46 Year
  Sex: Female

DRUGS (2)
  1. TENECTEPLASE [Suspect]
     Active Substance: TENECTEPLASE
     Indication: Acute myocardial infarction
     Route: 042
  2. ASPIRIN [Concomitant]
     Active Substance: ASPIRIN

REACTIONS (2)
  - Treatment failure [Unknown]
  - Cardiogenic shock [Recovered/Resolved]
